FAERS Safety Report 8153523-6 (Version None)
Quarter: 2012Q1

REPORT INFORMATION
  Report Type: 
  Country: None (occurrence: None)
  Receive Date: 20120216
  Receipt Date: 20120216
  Transmission Date: 20120608
  Serious: Yes (Hospitalization)
  Sender: FDA-Public Use
  Company Number: None

PATIENT
  Sex: Male
  Weight: 90.49 kg

DRUGS (1)
  1. GEMCITABINE HYDROCHLORIDE [Suspect]
     Dosage: 5880 MG
     Dates: start: 20120109, end: 20120123

REACTIONS (14)
  - OEDEMA PERIPHERAL [None]
  - CARDIORENAL SYNDROME [None]
  - FLUID OVERLOAD [None]
  - HYPOXIA [None]
  - PULMONARY OEDEMA [None]
  - CONDITION AGGRAVATED [None]
  - PLEURAL EFFUSION [None]
  - CAPILLARY LEAK SYNDROME [None]
  - DIABETIC NEPHROPATHY [None]
  - PNEUMONIA [None]
  - DYSPNOEA EXERTIONAL [None]
  - CARDIAC FAILURE CONGESTIVE [None]
  - RENAL FAILURE ACUTE [None]
  - ORTHOPNOEA [None]
